FAERS Safety Report 7535302-3 (Version None)
Quarter: 2011Q2

REPORT INFORMATION
  Report Type: 
  Country: None (occurrence: None)
  Receive Date: 20110609
  Receipt Date: 20071204
  Transmission Date: 20111010
  Serious: Yes (Death, Hospitalization)
  Sender: FDA-Public Use
  Company Number: PHEH2007US12124

PATIENT
  Sex: Female
  Weight: 60 kg

DRUGS (12)
  1. DOXYCYCLINE [Concomitant]
  2. FOLIC ACID [Concomitant]
  3. MS CONTIN [Concomitant]
     Dosage: UNK, BID
  4. HYDREA [Concomitant]
     Dosage: 2 G, QD
  5. EXJADE [Suspect]
     Dosage: 2 G, QD
     Route: 048
     Dates: start: 20070901
  6. EXJADE [Suspect]
     Indication: CHELATION THERAPY
     Dosage: 2000 MG, QD
     Route: 048
     Dates: start: 20060616, end: 20070901
  7. LORTAB [Concomitant]
     Dosage: 10 MG, PRN
  8. AMBIEN [Concomitant]
  9. PHENOBARBITAL TAB [Concomitant]
     Dosage: 100 MG, UNK
  10. COUMADIN [Concomitant]
  11. PHENYTOIN SODIUM [Concomitant]
  12. PHENERGAN HCL [Concomitant]

REACTIONS (9)
  - DEATH [None]
  - RED BLOOD CELL COUNT DECREASED [None]
  - CELLULITIS [None]
  - HAEMATOCRIT DECREASED [None]
  - NAUSEA [None]
  - HAEMOGLOBIN DECREASED [None]
  - MEAN CELL VOLUME ABNORMAL [None]
  - SICKLE CELL ANAEMIA WITH CRISIS [None]
  - PAIN [None]
